FAERS Safety Report 12103677 (Version 1)
Quarter: 2016Q1

REPORT INFORMATION
  Report Type: Other
  Country: US (occurrence: US)
  Receive Date: 20160222
  Receipt Date: 20160222
  Transmission Date: 20160526
  Serious: No
  Sender: FDA-Public Use
  Company Number: US-ACORDA-ACO_113343_2015

PATIENT
  Age: 66 Year
  Sex: Female

DRUGS (1)
  1. AMPYRA [Suspect]
     Active Substance: DALFAMPRIDINE
     Indication: PRODUCT USED FOR UNKNOWN INDICATION
     Dosage: 10 MG, UNK
     Route: 065
     Dates: start: 20110726, end: 20110730

REACTIONS (5)
  - Glossodynia [Unknown]
  - Salt craving [Unknown]
  - Balance disorder [Unknown]
  - Ageusia [Unknown]
  - Abnormal dreams [Unknown]

NARRATIVE: CASE EVENT DATE: 201107
